FAERS Safety Report 21332493 (Version 1)
Quarter: 2022Q3

REPORT INFORMATION
  Report Type: Spontaneous
  Country: US (occurrence: US)
  Receive Date: 20220914
  Receipt Date: 20220914
  Transmission Date: 20221027
  Serious: No
  Sender: FDA-Public Use
  Company Number: US-ORGANON-O2209USA000351

PATIENT

DRUGS (3)
  1. DIPROLENE [Suspect]
     Active Substance: BETAMETHASONE DIPROPIONATE
     Indication: Skin reaction
     Dosage: UNK
  2. UREA [Suspect]
     Active Substance: UREA
     Indication: Skin reaction
     Dosage: UNK
  3. REGORAFENIB [Concomitant]
     Active Substance: REGORAFENIB
     Indication: Colorectal adenocarcinoma
     Dosage: 120 MG DAILY FOR 3 WK ON, ALTERNATING WITH 1 WK OFF

REACTIONS (1)
  - Drug ineffective [Unknown]
